FAERS Safety Report 5316746-7 (Version None)
Quarter: 2007Q2

REPORT INFORMATION
  Report Type: 
  Country: None (occurrence: None)
  Receive Date: 20070501
  Receipt Date: 20070501
  Transmission Date: 20071010
  Serious: Yes (Hospitalization)
  Sender: FDA-Public Use
  Company Number: None

PATIENT
  Sex: Male
  Weight: 138 kg

DRUGS (5)
  1. SPIRIVA [Suspect]
     Indication: CHRONIC OBSTRUCTIVE PULMONARY DISEASE
     Dosage: 18 MCG DAILY PO
     Route: 048
     Dates: start: 20070416, end: 20070426
  2. LISINOPRIL [Suspect]
     Indication: DIABETES MELLITUS
     Dosage: 20 BID DAILY PO
     Route: 048
  3. LISINOPRIL [Suspect]
     Indication: RENAL FAILURE
     Dosage: 20 BID DAILY PO
     Route: 048
  4. AVAPRO [Suspect]
     Indication: DIABETES MELLITUS
     Dosage: 300 BID/DAILY PO
     Route: 048
  5. AVAPRO [Suspect]
     Indication: RENAL FAILURE
     Dosage: 300 BID/DAILY PO
     Route: 048

REACTIONS (1)
  - ANGIOEDEMA [None]
